FAERS Safety Report 4741300-5 (Version None)
Quarter: 2005Q3

REPORT INFORMATION
  Report Type: 
  Country: None (occurrence: None)
  Receive Date: 20050803
  Receipt Date: 20041223
  Transmission Date: 20060218
  Serious: Yes (Other)
  Sender: FDA-Public Use
  Company Number: 2004-12-1198

PATIENT
  Age: 23 Year
  Sex: Male
  Weight: 62.5964 kg

DRUGS (4)
  1. INTRON A [Suspect]
     Indication: MALIGNANT MELANOMA
     Dosage: 15 MIU IV;  15 MIU SQ
     Route: 042
     Dates: start: 20041018, end: 20041114
  2. INTRON A [Suspect]
     Indication: MALIGNANT MELANOMA
     Dosage: 15 MIU IV;  15 MIU SQ
     Route: 042
     Dates: start: 20041115, end: 20041220
  3. PAXIL [Suspect]
     Indication: DEPRESSION
     Dosage: 10-5 MG ORAL
     Route: 048
     Dates: start: 20041018, end: 20050104
  4. ATIVAN [Concomitant]

REACTIONS (3)
  - AGGRESSION [None]
  - FATIGUE [None]
  - SUICIDE ATTEMPT [None]
